FAERS Safety Report 22260640 (Version 1)
Quarter: 2023Q2

REPORT INFORMATION
  Report Type: Spontaneous
  Country: US (occurrence: US)
  Receive Date: 20230427
  Receipt Date: 20230427
  Transmission Date: 20230722
  Serious: Yes (Hospitalization)
  Sender: FDA-Public Use
  Company Number: US-PFIZER INC-PV202300074892

PATIENT
  Age: 58 Year
  Sex: Male

DRUGS (1)
  1. XELJANZ [Suspect]
     Active Substance: TOFACITINIB CITRATE
     Dosage: 5 MG
     Dates: start: 20200919

REACTIONS (7)
  - Renal impairment [Unknown]
  - Sepsis [Unknown]
  - Septic shock [Unknown]
  - Intestinal obstruction [Unknown]
  - Haemorrhage [Unknown]
  - Urinary tract infection [Unknown]
  - Haemoglobin decreased [Unknown]
